FAERS Safety Report 7242862 (Version 1)
Quarter: 2020Q3

REPORT INFORMATION
  Report Type: Report from Study
  Country: US (occurrence: US)
  Receive Date: 20100112
  Receipt Date: 20100112
  Transmission Date: 20201105
  Serious: Yes (Death, Hospitalization)
  Sender: FDA-Public Use
  Company Number: US-ROCHE-677590

PATIENT
  Age: 48 Year
  Sex: Female
  Weight: 68.2 kg

DRUGS (1)
  1. IBANDRONIC ACID. [Suspect]
     Active Substance: IBANDRONIC ACID
     Dosage: PATIENT MISSED TWELVE DAYS OUT OF 230 DAYS
     Route: 065
     Dates: start: 20090306, end: 20091021

REACTIONS (6)
  - Neoplasm malignant [Recovered/Resolved]
  - Pneumonitis [Recovered/Resolved]
  - Cerebrovascular accident [Fatal]
  - Respiratory distress [Recovered/Resolved]
  - Aspartate aminotransferase increased [Recovered/Resolved]
  - Lung infiltration [Recovered/Resolved]

NARRATIVE: CASE EVENT DATE: 20090925
